FAERS Safety Report 9836818 (Version 1)
Quarter: 2014Q1

REPORT INFORMATION
  Report Type: Spontaneous
  Country: US (occurrence: None)
  Receive Date: 20140116
  Receipt Date: 20140116
  Transmission Date: 20141002
  Serious: Yes (Other)
  Sender: FDA-Public Use
  Company Number: None

PATIENT
  Age: 58 Year
  Sex: Female

DRUGS (1)
  1. BOTOX [Suspect]
     Indication: MIGRAINE
     Dosage: 100 UNITS  EVERY 3 MONTHS  INTRAMUSCULAR
     Route: 030
     Dates: start: 20131213

REACTIONS (3)
  - Muscular weakness [None]
  - Neck pain [None]
  - Impaired work ability [None]
